FAERS Safety Report 6108212-6 (Version None)
Quarter: 2009Q1

REPORT INFORMATION
  Report Type: 
  Country: None (occurrence: None)
  Receive Date: 20090304
  Receipt Date: 20081103
  Transmission Date: 20090719
  Serious: Yes (Other)
  Sender: FDA-Public Use
  Company Number: US-002102

PATIENT
  Age: 10 Year
  Sex: Female

DRUGS (3)
  1. ISOVUE-300 [Suspect]
     Indication: ABDOMINAL PAIN
     Dosage: 75ML QD INTRAVENOUS (NOT OTHERWISE SPECIFIED)
     Route: 042
     Dates: start: 20081102, end: 20081102
  2. ISOVUE-300 [Suspect]
     Indication: COMPUTERISED TOMOGRAM
     Dosage: 75ML QD INTRAVENOUS (NOT OTHERWISE SPECIFIED)
     Route: 042
     Dates: start: 20081102, end: 20081102
  3. ISOVUE-300 [Suspect]
     Indication: VOMITING
     Dosage: 75ML QD INTRAVENOUS (NOT OTHERWISE SPECIFIED)
     Route: 042
     Dates: start: 20081102, end: 20081102

REACTIONS (1)
  - HYPERSENSITIVITY [None]
